FAERS Safety Report 6124405-6 (Version None)
Quarter: 2009Q1

REPORT INFORMATION
  Report Type: 
  Country: None (occurrence: None)
  Receive Date: 20090319
  Receipt Date: 20090312
  Transmission Date: 20090719
  Serious: Yes (Other)
  Sender: FDA-Public Use
  Company Number: US-ASTRAZENECA-2009UW06524

PATIENT
  Sex: Female

DRUGS (2)
  1. SYMBICORT [Suspect]
     Route: 055
  2. PREDNISONE TAB [Concomitant]

REACTIONS (6)
  - ANAPHYLACTIC REACTION [None]
  - CHEST DISCOMFORT [None]
  - EYE SWELLING [None]
  - HYPERTENSION [None]
  - LUNG DISORDER [None]
  - THROAT TIGHTNESS [None]
